FAERS Safety Report 23847227 (Version 1)
Quarter: 2024Q2

REPORT INFORMATION
  Report Type: Spontaneous
  Country: JP (occurrence: JP)
  Receive Date: 20240513
  Receipt Date: 20240513
  Transmission Date: 20240716
  Serious: Yes (Other)
  Sender: FDA-Public Use
  Company Number: JP-AMNEAL PHARMACEUTICALS-2024-AMRX-01585

PATIENT
  Age: 62 Year
  Sex: Female

DRUGS (2)
  1. ANAGRELIDE HYDROCHLORIDE [Suspect]
     Active Substance: ANAGRELIDE HYDROCHLORIDE
     Indication: Product used for unknown indication
     Dosage: 2.0 MILLIGRAM, DAILY
     Route: 065
  2. ANAGRELIDE HYDROCHLORIDE [Suspect]
     Active Substance: ANAGRELIDE HYDROCHLORIDE
     Dosage: 3.0 MILLIGRAM, DAILY
     Route: 065

REACTIONS (4)
  - Renal tubular necrosis [Recovering/Resolving]
  - Renal arteriosclerosis [Recovering/Resolving]
  - Tubulointerstitial nephritis [Recovering/Resolving]
  - Tachycardia [Unknown]
